FAERS Safety Report 8228310-0 (Version None)
Quarter: 2012Q1

REPORT INFORMATION
  Report Type: 
  Country: None (occurrence: None)
  Receive Date: 20120322
  Receipt Date: 20120312
  Transmission Date: 20120608
  Serious: Yes (Life-Threatening, Hospitalization)
  Sender: FDA-Public Use
  Company Number: DE-JNJFOC-20120200592

PATIENT
  Age: 63 Year
  Sex: Female

DRUGS (5)
  1. PREDNISOLONE [Concomitant]
  2. LEFLUNOMIDE [Concomitant]
     Indication: PRODUCT USED FOR UNKNOWN INDICATION
     Dates: start: 20020701, end: 20110401
  3. INFLIXIMAB, RECOMBINANT [Suspect]
     Indication: RHEUMATOID ARTHRITIS
     Dosage: TOTAL OF 6000MG
     Route: 042
     Dates: start: 20041122, end: 20110501
  4. ARCOXIA [Concomitant]
  5. BONDIOL [Concomitant]

REACTIONS (2)
  - FEMUR FRACTURE [None]
  - NON-HODGKIN'S LYMPHOMA [None]
